FAERS Safety Report 8511267-2 (Version None)
Quarter: 2012Q2

REPORT INFORMATION
  Report Type: 
  Country: None (occurrence: None)
  Receive Date: 20120629
  Receipt Date: 20120619
  Transmission Date: 20120825
  Serious: Yes (Other)
  Sender: FDA-Public Use
  Company Number: B0810543A

PATIENT
  Age: 74 Year
  Sex: Male

DRUGS (2)
  1. ADEFOVIR DIPIVOXIL KIT [Suspect]
     Indication: HEPATITIS B
     Dosage: 10 MG /PER DAY /
  2. LAMIVUDINE (EPIVIR HBV) [Suspect]
     Indication: HEPATITIS B
     Dosage: 100 DAY/PER DAY

REACTIONS (1)
  - ALANINE AMINOTRANSFERASE INCREASED [None]
